FAERS Safety Report 7589166-2 (Version None)
Quarter: 2011Q3

REPORT INFORMATION
  Report Type: 
  Country: None (occurrence: None)
  Receive Date: 20110705
  Receipt Date: 20110628
  Transmission Date: 20111222
  Serious: Yes (Hospitalization, Other)
  Sender: FDA-Public Use
  Company Number: US-JNJFOC-20100805643

PATIENT
  Sex: Male

DRUGS (2)
  1. LEVOFLOXACIN [Suspect]
     Indication: INFECTION
     Route: 048
     Dates: start: 20070101, end: 20070101
  2. LEVAQUIN [Suspect]
     Indication: PRODUCT USED FOR UNKNOWN INDICATION
     Route: 048

REACTIONS (7)
  - TENDON RUPTURE [None]
  - TENDON DISORDER [None]
  - ARTHRALGIA [None]
  - TENDONITIS [None]
  - ROTATOR CUFF SYNDROME [None]
  - EPICONDYLITIS [None]
  - JOINT INJURY [None]
